FAERS Safety Report 20646255 (Version 3)
Quarter: 2022Q3

REPORT INFORMATION
  Report Type: Spontaneous
  Country: US (occurrence: US)
  Receive Date: 20220329
  Receipt Date: 20220809
  Transmission Date: 20221026
  Serious: Yes (Other)
  Sender: FDA-Public Use
  Company Number: US-JNJFOC-20220347012

PATIENT
  Age: 5 Decade
  Sex: Female

DRUGS (3)
  1. ELMIRON [Suspect]
     Active Substance: PENTOSAN POLYSULFATE SODIUM
     Indication: Cystitis interstitial
     Dosage: 2 CAPSULES/DAY
     Route: 048
     Dates: start: 2000, end: 202007
  2. TENORMIN [Concomitant]
     Active Substance: ATENOLOL
     Indication: Heart rate irregular
     Dates: start: 1977
  3. ESTRADIOL [Concomitant]
     Active Substance: ESTRADIOL
     Indication: Hormone replacement therapy
     Dates: start: 1983

REACTIONS (4)
  - Maculopathy [Unknown]
  - Retinal degeneration [Unknown]
  - Depression [Unknown]
  - Off label use [Unknown]

NARRATIVE: CASE EVENT DATE: 20000101
